FAERS Safety Report 8012024-6 (Version None)
Quarter: 2011Q4

REPORT INFORMATION
  Report Type: 
  Country: None (occurrence: None)
  Receive Date: 20111228
  Receipt Date: 20111220
  Transmission Date: 20120403
  Serious: Yes (Hospitalization)
  Sender: FDA-Public Use
  Company Number: GB-GLAXOSMITHKLINE-B0770368A

PATIENT
  Age: 59 Year
  Sex: Male

DRUGS (8)
  1. ASPIRIN [Concomitant]
  2. ATORVASTATIN [Concomitant]
  3. VOTRIENT [Suspect]
     Indication: RENAL CANCER
     Dosage: 400MG PER DAY
     Route: 048
     Dates: start: 20111025, end: 20111202
  4. MORPHINE SULFATE [Concomitant]
  5. LANSOPRAZOLE [Concomitant]
  6. GABAPENTIN [Concomitant]
  7. NAPROXEN [Concomitant]
  8. BISOPROLOL [Concomitant]

REACTIONS (1)
  - VENTRICULAR TACHYCARDIA [None]
